FAERS Safety Report 17113322 (Version 1)
Quarter: 2019Q4

REPORT INFORMATION
  Report Type: Report from Study
  Country: None (occurrence: DE)
  Receive Date: 20191204
  Receipt Date: 20191204
  Transmission Date: 20200122
  Serious: Yes (Hospitalization)
  Sender: FDA-Public Use
  Company Number: DE-ABBVIE-19K-062-3172419-00

PATIENT
  Age: 79 Year
  Sex: Male
  Weight: 65 kg

DRUGS (19)
  1. BORTEZOMIB. [Suspect]
     Active Substance: BORTEZOMIB
     Dosage: CYCLE 1-8 ON DAYS1,4,8.11 OF 21 DAY CYCLE 1.3 MG/M2,CYCLE 9 AND BEYOND: ON DAYS 1,8,15
     Route: 058
     Dates: start: 20171120
  2. MOVICOL [Concomitant]
     Active Substance: POLYETHYLENE GLYCOL 3350\POTASSIUM CHLORIDE\SODIUM BICARBONATE\SODIUM CHLORIDE
     Indication: CONSTIPATION
     Route: 065
     Dates: start: 20170701, end: 20170702
  3. BACTRIM [Concomitant]
     Active Substance: SULFAMETHOXAZOLE\TRIMETHOPRIM
     Indication: PROPHYLAXIS
     Route: 048
     Dates: start: 20190308
  4. VENETOCLAX. [Suspect]
     Active Substance: VENETOCLAX
     Indication: PLASMA CELL MYELOMA
     Dosage: 800 MG, 1 IN1
     Route: 048
     Dates: start: 20170606
  5. URIVESC [Concomitant]
     Active Substance: TROSPIUM CHLORIDE
     Indication: BENIGN PROSTATIC HYPERPLASIA
     Route: 048
     Dates: start: 20180317
  6. SODIUM CHLORIDE. [Concomitant]
     Active Substance: SODIUM CHLORIDE
     Indication: PRODUCT USED FOR UNKNOWN INDICATION
     Route: 042
     Dates: start: 20170606
  7. ZOFRAN [Concomitant]
     Active Substance: ONDANSETRON HYDROCHLORIDE
     Indication: NAUSEA
     Route: 042
     Dates: start: 20170606
  8. FINASTERID [Concomitant]
     Active Substance: FINASTERIDE
     Indication: BENIGN PROSTATIC HYPERPLASIA
     Route: 048
     Dates: start: 20170920
  9. DEXAMETHASONE. [Suspect]
     Active Substance: DEXAMETHASONE
     Indication: PLASMA CELL MYELOMA
     Dosage: CYCLE 1- 8 ON DAYS 1,2,4,5,8,9,11 AND 12 OF 21 DAY CYCLE 20 MG?CYCLE 9 BEYOND ON DAYS
     Route: 048
     Dates: start: 20170606, end: 20171107
  10. ACICLOVIR [Concomitant]
     Active Substance: ACYCLOVIR
     Indication: PROPHYLAXIS
     Route: 048
     Dates: start: 20170605
  11. DEXAMETHASONE. [Suspect]
     Active Substance: DEXAMETHASONE
     Route: 048
     Dates: start: 20171120
  12. BORTEZOMIB. [Suspect]
     Active Substance: BORTEZOMIB
     Indication: PLASMA CELL MYELOMA
     Route: 058
     Dates: start: 20170606, end: 20171106
  13. VIVIDRIN AKUT [Concomitant]
     Indication: SEASONAL ALLERGY
     Dosage: AS NECESSARY
     Route: 045
     Dates: start: 1987
  14. LEVOFLOXACIN. [Concomitant]
     Active Substance: LEVOFLOXACIN
     Indication: PROPHYLAXIS
     Route: 048
     Dates: start: 20190308
  15. XARELTO [Concomitant]
     Active Substance: RIVAROXABAN
     Indication: PROPHYLAXIS
     Route: 048
     Dates: start: 20170913, end: 20171108
  16. XARELTO [Concomitant]
     Active Substance: RIVAROXABAN
     Route: 048
     Dates: start: 20171114, end: 20180204
  17. XARELTO [Concomitant]
     Active Substance: RIVAROXABAN
     Route: 048
     Dates: start: 20180221
  18. MOVICOL [Concomitant]
     Active Substance: POLYETHYLENE GLYCOL 3350\POTASSIUM CHLORIDE\SODIUM BICARBONATE\SODIUM CHLORIDE
     Route: 065
     Dates: start: 20180920
  19. MADOPAR [Concomitant]
     Active Substance: BENSERAZIDE HYDROCHLORIDE\LEVODOPA
     Indication: PARKINSON^S DISEASE
     Route: 048
     Dates: start: 2018

REACTIONS (1)
  - Pneumonia [Not Recovered/Not Resolved]

NARRATIVE: CASE EVENT DATE: 20191031
